FAERS Safety Report 24372045 (Version 1)
Quarter: 2024Q3

REPORT INFORMATION
  Report Type: Spontaneous
  Country: US (occurrence: None)
  Receive Date: 20240927
  Receipt Date: 20240927
  Transmission Date: 20241017
  Serious: Yes (Hospitalization)
  Sender: Public
  Company Number: None

PATIENT
  Sex: Female
  Weight: 108 kg

DRUGS (1)
  1. DULOXETINE HYDROCHLORIDE [Suspect]
     Active Substance: DULOXETINE HYDROCHLORIDE

REACTIONS (11)
  - Malaise [None]
  - Headache [None]
  - Productive cough [None]
  - Sneezing [None]
  - Asthenia [None]
  - Rhinorrhoea [None]
  - Hot flush [None]
  - Flushing [None]
  - Nausea [None]
  - Vomiting [None]
  - Immunodeficiency [None]

NARRATIVE: CASE EVENT DATE: 20230423
